FAERS Safety Report 6660556-5 (Version None)
Quarter: 2010Q1

REPORT INFORMATION
  Report Type: 
  Country: None (occurrence: None)
  Receive Date: 20100331
  Receipt Date: 20100316
  Transmission Date: 20100710
  Serious: Yes (Death, Other)
  Sender: FDA-Public Use
  Company Number: FR-BAYER-201019843GPV

PATIENT
  Age: 40 Year
  Sex: Male

DRUGS (6)
  1. FLUDARABINE PHOSPHATE [Suspect]
     Indication: CHRONIC LYMPHOCYTIC LEUKAEMIA REFRACTORY
  2. FLUDARABINE PHOSPHATE [Suspect]
  3. COTRIM [Suspect]
     Indication: LUNG DISORDER
  4. CORTICOSTEROIDS [Concomitant]
     Indication: CHRONIC LYMPHOCYTIC LEUKAEMIA
  5. CYCLOSPORINE [Concomitant]
     Indication: PROPHYLAXIS AGAINST GRAFT VERSUS HOST DISEASE
  6. MYCOPHENOLATE MOFETIL [Concomitant]
     Indication: PROPHYLAXIS AGAINST GRAFT VERSUS HOST DISEASE

REACTIONS (7)
  - ACUTE GRAFT VERSUS HOST DISEASE IN SKIN [None]
  - ACUTE RESPIRATORY FAILURE [None]
  - HAEMOLYTIC URAEMIC SYNDROME [None]
  - HYPOXIA [None]
  - LUNG INFECTION [None]
  - NEPHROPATHY TOXIC [None]
  - PNEUMONIA TOXOPLASMAL [None]
